FAERS Safety Report 14703133 (Version 1)
Quarter: 2018Q2

REPORT INFORMATION
  Report Type: Spontaneous
  Country: US (occurrence: US)
  Receive Date: 20180402
  Receipt Date: 20180402
  Transmission Date: 20180711
  Serious: Yes (Hospitalization)
  Sender: FDA-Public Use
  Company Number: US-ACCORD-065052

PATIENT
  Sex: Female

DRUGS (4)
  1. FELBAMATE. [Concomitant]
     Active Substance: FELBAMATE
  2. DEPAKOTE [Concomitant]
     Active Substance: DIVALPROEX SODIUM
  3. ONFI [Suspect]
     Active Substance: CLOBAZAM
     Indication: SEIZURE
     Dates: start: 20170710
  4. SERTRALINE [Suspect]
     Active Substance: SERTRALINE HYDROCHLORIDE
     Indication: PRODUCT USED FOR UNKNOWN INDICATION

REACTIONS (8)
  - Incontinence [Unknown]
  - Insomnia [Unknown]
  - Decreased appetite [Unknown]
  - Depressed level of consciousness [Unknown]
  - Thirst decreased [Unknown]
  - Nystagmus [Unknown]
  - Balance disorder [Unknown]
  - Weight decreased [Unknown]
